FAERS Safety Report 7509524-1 (Version None)
Quarter: 2011Q2

REPORT INFORMATION
  Report Type: 
  Country: None (occurrence: None)
  Receive Date: 20110527
  Receipt Date: 20110518
  Transmission Date: 20111010
  Serious: Yes (Hospitalization, Other)
  Sender: FDA-Public Use
  Company Number: US-AMGEN-USASP2011025818

PATIENT
  Sex: Female

DRUGS (1)
  1. ENBREL [Suspect]
     Indication: RHEUMATOID ARTHRITIS
     Dosage: 50 MG, QMO
     Dates: start: 20050101

REACTIONS (8)
  - METASTASES TO LYMPH NODES [None]
  - BREAST CANCER FEMALE [None]
  - BREAST RECONSTRUCTION [None]
  - RHEUMATOID NODULE [None]
  - RHEUMATOID ARTHRITIS [None]
  - FOOT FRACTURE [None]
  - SINUSITIS [None]
  - BREAST CANCER RECURRENT [None]
